FAERS Safety Report 7211600-8 (Version None)
Quarter: 2011Q1

REPORT INFORMATION
  Report Type: 
  Country: None (occurrence: None)
  Receive Date: 20110105
  Receipt Date: 20101228
  Transmission Date: 20110831
  Serious: Yes (Life-Threatening, Hospitalization)
  Sender: FDA-Public Use
  Company Number: US-ELI_LILLY_AND_COMPANY-US201012006390

PATIENT
  Sex: Female

DRUGS (14)
  1. CYMBALTA [Concomitant]
     Dosage: UNK, UNKNOWN
     Route: 065
  2. ACIDOPHILUS [Concomitant]
     Dosage: UNK, UNKNOWN
     Route: 065
  3. ALBUTEROL [Concomitant]
     Dosage: UNK, UNKNOWN
     Route: 065
  4. PREMPRO [Concomitant]
     Dosage: UNK, UNKNOWN
     Route: 065
  5. FORTEO [Suspect]
     Indication: OSTEOPOROSIS
     Dosage: 20 UG, DAILY (1/D)
     Route: 065
  6. SPIRIVA [Concomitant]
     Dosage: UNK, UNKNOWN
     Route: 065
  7. CALCIUM [Concomitant]
     Dosage: UNK, UNKNOWN
     Route: 065
  8. LEVOTHYROXINE [Concomitant]
     Dosage: UNK, UNKNOWN
     Route: 065
  9. PROMETHAZINE [Concomitant]
     Indication: NAUSEA
     Dosage: UNK, UNKNOWN
     Route: 065
  10. VITAMIN D [Concomitant]
     Dosage: UNK, UNKNOWN
     Route: 065
  11. LABETALOL [Concomitant]
     Indication: BLOOD PRESSURE
     Dosage: UNK, UNKNOWN
     Route: 065
  12. ASPIRIN [Concomitant]
     Dosage: UNK, DAILY (1/D)
     Route: 065
  13. ADVAIR DISKUS 100/50 [Concomitant]
     Dosage: UNK, UNKNOWN
     Route: 065
  14. OXYCODONE HCL [Concomitant]
     Dosage: UNK, 2/D
     Route: 065

REACTIONS (2)
  - CHOKING [None]
  - CARDIAC FAILURE CONGESTIVE [None]
